FAERS Safety Report 17577407 (Version 1)
Quarter: 2020Q1

REPORT INFORMATION
  Report Type: Spontaneous
  Country: IR (occurrence: IR)
  Receive Date: 20200324
  Receipt Date: 20200324
  Transmission Date: 20200409
  Serious: Yes (Hospitalization, Other)
  Sender: FDA-Public Use
  Company Number: IR-BAXTER-2020BAX006443

PATIENT
  Age: 12 Year
  Sex: Female
  Weight: 19 kg

DRUGS (7)
  1. DOXIL [Suspect]
     Active Substance: DOXORUBICIN HYDROCHLORIDE
     Indication: NEUROBLASTOMA
  2. PANOBINOSTAT [Suspect]
     Active Substance: PANOBINOSTAT
     Indication: METASTASES TO SPINE
  3. ETOPOSIDE. [Suspect]
     Active Substance: ETOPOSIDE
     Indication: METASTASES TO SPINE
     Route: 042
     Dates: start: 201703, end: 201709
  4. PANOBINOSTAT [Suspect]
     Active Substance: PANOBINOSTAT
     Indication: NEUROBLASTOMA
     Dosage: EVERY 21 DAYS, THREE TIMES/WEEK (MONDAY, WEDNESDAY, AND FRIDAY) DAYS 1, 3, 5, 8, 10, 12 FOR TWO W...
     Route: 048
     Dates: start: 201703, end: 201709
  5. ETOPOSIDE. [Suspect]
     Active Substance: ETOPOSIDE
     Indication: NEUROBLASTOMA
  6. DOXIL [Suspect]
     Active Substance: DOXORUBICIN HYDROCHLORIDE
     Indication: METASTASES TO SPINE
     Dosage: FOR 4 HOURS ON DAY 1 OF EACH COURSE, EVERY 21 DAYS: CYCLICAL
     Route: 042
     Dates: start: 201703, end: 201709
  7. PANOBINOSTAT [Suspect]
     Active Substance: PANOBINOSTAT
     Indication: METASTASES TO BONE MARROW

REACTIONS (3)
  - Vomiting [Recovering/Resolving]
  - Febrile neutropenia [Recovered/Resolved]
  - Bone marrow failure [Unknown]

NARRATIVE: CASE EVENT DATE: 201703
